FAERS Safety Report 7501915-8 (Version None)
Quarter: 2011Q2

REPORT INFORMATION
  Report Type: 
  Country: None (occurrence: None)
  Receive Date: 20110525
  Receipt Date: 20110516
  Transmission Date: 20111010
  Serious: Yes (Life-Threatening, Hospitalization)
  Sender: FDA-Public Use
  Company Number: TW-BAYER-2011-041656

PATIENT
  Age: 43 Year
  Sex: Male
  Weight: 70 kg

DRUGS (11)
  1. ACETAMINOPHEN [Concomitant]
     Indication: PAIN
     Dosage: 1000 MG
     Route: 048
     Dates: start: 20110513
  2. SENNOSIDE [Concomitant]
     Dosage: 24 MG
     Route: 048
     Dates: start: 20110515
  3. MEK INHIBITOR (DIHYDROXYPROP-DIFLU-METHOXYPHEN-CYCLOPROPA-SULFAMI) [Suspect]
     Indication: HEPATIC NEOPLASM MALIGNANT
     Dosage: 50 MG, BID(ADDT'L LOT#'S-200464,200467)
     Route: 048
     Dates: start: 20110422, end: 20110516
  4. FUROSEMIDE [Concomitant]
     Indication: DIURETIC THERAPY
     Dosage: 40 MG
     Route: 042
     Dates: start: 20110515, end: 20110515
  5. SORAFENIB (RAF KINASE INHIBITOR) [Suspect]
     Indication: HEPATIC NEOPLASM MALIGNANT
     Dosage: 600 MG, QD(200 MG AM/ 400 MG PM)
     Route: 048
     Dates: start: 20110422, end: 20110516
  6. SPIRONOLACTONE [Concomitant]
     Indication: ASCITES
     Dosage: 25 MG, BID
     Route: 048
     Dates: start: 20110513
  7. FUROSEMIDE [Concomitant]
     Dosage: 20 MG
     Route: 042
     Dates: start: 20110515
  8. FUROSEMIDE [Concomitant]
     Indication: ASCITES
     Dosage: 80 MG
     Route: 048
     Dates: start: 20110513, end: 20110515
  9. ESTAZOLAM [Concomitant]
     Indication: INSOMNIA
     Dosage: 2 MG
     Route: 048
     Dates: start: 20110506
  10. METRONIDAZOLE [Concomitant]
     Indication: RASH
     Dosage: UNK
     Route: 061
     Dates: start: 20110506
  11. BLOOD TRANSFUSION, AUXILIARY PRODUCTS [Concomitant]
     Indication: ANAEMIA

REACTIONS (1)
  - DYSPNOEA [None]
